FAERS Safety Report 7522715-9 (Version None)
Quarter: 2011Q2

REPORT INFORMATION
  Report Type: 
  Country: None (occurrence: None)
  Receive Date: 20110603
  Receipt Date: 20110526
  Transmission Date: 20111010
  Serious: Yes (Hospitalization)
  Sender: FDA-Public Use
  Company Number: GB-MPIJNJ-2011-01460

PATIENT

DRUGS (12)
  1. ATORVASTATIN [Concomitant]
     Dosage: 10 MG, UNK
  2. NEBIVOLOL HCL [Concomitant]
     Dosage: 5 MG, UNK
  3. DIGOXIN [Concomitant]
     Dosage: 125 UG, UNK
  4. DIHYDROCODEINE BITARTRATE INJ [Concomitant]
     Dosage: UNK
  5. ACYCLOVIR [Concomitant]
     Indication: PROPHYLAXIS
     Dosage: 400 MG, BID
  6. VELCADE [Suspect]
     Indication: MULTIPLE MYELOMA
     Dosage: 2.3 MG, UNK
     Route: 042
     Dates: start: 20101207, end: 20110218
  7. QUININE SULFATE [Concomitant]
     Dosage: 200 MG, UNK
  8. DEXAMETHASONE [Concomitant]
     Indication: MULTIPLE MYELOMA
     Dosage: 20 MG, UNK
  9. MESALAMINE [Concomitant]
     Dosage: 400 MG, UNK
  10. ALENDRONATE SODIUM [Concomitant]
     Dosage: 800 MG, BID
  11. WARFARIN SODIUM [Concomitant]
     Dosage: UNK
  12. LANSOPRAZOLE [Concomitant]
     Dosage: 30 MG, UNK

REACTIONS (2)
  - MULTIPLE MYELOMA [None]
  - DRUG INEFFECTIVE [None]
